FAERS Safety Report 21012614 (Version 1)
Quarter: 2022Q2

REPORT INFORMATION
  Report Type: Spontaneous
  Country: AU (occurrence: AU)
  Receive Date: 20220627
  Receipt Date: 20220627
  Transmission Date: 20220721
  Serious: Yes (Death, Hospitalization, Other)
  Sender: FDA-Public Use
  Company Number: AU-SA-SAC20220610001525

PATIENT
  Sex: Female

DRUGS (11)
  1. LIBTAYO [Suspect]
     Active Substance: CEMIPLIMAB-RWLC
     Indication: Cervix cancer metastatic
     Dosage: 350 MG
     Route: 042
     Dates: start: 20220303, end: 20220606
  2. PIPERACILLIN AND TAZOBACTAM [Concomitant]
     Active Substance: PIPERACILLIN SODIUM\TAZOBACTAM SODIUM
     Indication: Product used for unknown indication
     Dosage: 4.5 MG, QID
     Route: 042
     Dates: start: 20220605, end: 20220608
  3. OSELTAMIVIR [Concomitant]
     Active Substance: OSELTAMIVIR
     Indication: Product used for unknown indication
     Dosage: 75 MG, QD
     Route: 048
     Dates: start: 20220606, end: 20220608
  4. DEXAMETHASONE [Concomitant]
     Active Substance: DEXAMETHASONE
     Indication: Product used for unknown indication
     Dosage: 2 MG, QD
     Route: 048
     Dates: start: 20220301, end: 20220608
  5. APIXABAN [Concomitant]
     Active Substance: APIXABAN
     Indication: Product used for unknown indication
     Dosage: 5 MG, BID
     Route: 048
     Dates: start: 20210827, end: 20220608
  6. FUROSEMIDE [Concomitant]
     Active Substance: FUROSEMIDE
     Indication: Product used for unknown indication
     Dosage: UNK
     Route: 042
     Dates: start: 20220605, end: 20220608
  7. POLYETHYLENE GLYCOLS [Concomitant]
     Active Substance: POLYETHYLENE GLYCOLS
     Indication: Product used for unknown indication
     Dosage: UNK
     Route: 048
     Dates: start: 20220605, end: 20220608
  8. PANTOPRAZOLE [Concomitant]
     Active Substance: PANTOPRAZOLE
     Indication: Product used for unknown indication
     Dosage: UNK
     Route: 048
     Dates: start: 20220605, end: 20220608
  9. MORPHINE [Concomitant]
     Active Substance: MORPHINE
     Indication: Product used for unknown indication
     Dosage: 2.5 MG, Q4H, PRN
     Route: 058
     Dates: start: 20220608, end: 20220610
  10. MIDAZOLAM [Concomitant]
     Active Substance: MIDAZOLAM
     Indication: Product used for unknown indication
     Dosage: 2.5 MG, Q2H
     Route: 058
     Dates: start: 20220608, end: 20220610
  11. MAGNESIUM [Concomitant]
     Active Substance: MAGNESIUM
     Indication: Product used for unknown indication
     Dosage: 500 MG, QD
     Route: 048
     Dates: start: 20220605, end: 20220608

REACTIONS (6)
  - Pneumonia influenzal [Fatal]
  - Hepatic failure [Fatal]
  - Respiratory failure [Fatal]
  - Malignant neoplasm progression [Fatal]
  - Fatigue [Unknown]
  - Nausea [Unknown]

NARRATIVE: CASE EVENT DATE: 20220605
